FAERS Safety Report 6937741-8 (Version None)
Quarter: 2010Q3

REPORT INFORMATION
  Report Type: 
  Country: None (occurrence: None)
  Receive Date: 20100820
  Receipt Date: 20100820
  Transmission Date: 20110219
  Serious: Yes (Other)
  Sender: FDA-Public Use
  Company Number: None

PATIENT
  Age: 78 Year
  Sex: Female
  Weight: 54.1595 kg

DRUGS (1)
  1. AMOXICILLIN/CLAVULANATE POTASSIUM [Suspect]
     Indication: LUNG INFECTION
     Dosage: 1 TAB TWICE DAILY PO
     Route: 048
     Dates: start: 20100805, end: 20100810

REACTIONS (4)
  - GLOSSODYNIA [None]
  - LIP SWELLING [None]
  - ORAL DISCOMFORT [None]
  - ORAL PAIN [None]
